FAERS Safety Report 12916699 (Version 2)
Quarter: 2016Q4

REPORT INFORMATION
  Report Type: Spontaneous
  Country: US (occurrence: US)
  Receive Date: 20161107
  Receipt Date: 20161216
  Transmission Date: 20170207
  Serious: No
  Sender: FDA-Public Use
  Company Number: US-JAZZ-2016-US-017379

PATIENT
  Sex: Female

DRUGS (19)
  1. XYREM [Suspect]
     Active Substance: SODIUM OXYBATE
     Indication: NARCOLEPSY
     Dosage: 1.5 G, BID
     Route: 048
     Dates: start: 201305, end: 201305
  2. XYREM [Suspect]
     Active Substance: SODIUM OXYBATE
     Indication: CATAPLEXY
     Dosage: DOSE ADJUSTMENTS
     Route: 048
     Dates: start: 201305, end: 201402
  3. IBUPROFEN. [Concomitant]
     Active Substance: IBUPROFEN
  4. VALTREX [Concomitant]
     Active Substance: VALACYCLOVIR HYDROCHLORIDE
  5. PROVENTIL HFA [Concomitant]
     Active Substance: ALBUTEROL SULFATE
  6. ESCITALOPRAM [Concomitant]
     Active Substance: ESCITALOPRAM OXALATE
  7. ALPRAZOLAM. [Concomitant]
     Active Substance: ALPRAZOLAM
  8. PARAGARD T 380A [Concomitant]
     Active Substance: COPPER
  9. XYREM [Suspect]
     Active Substance: SODIUM OXYBATE
     Dosage: 2.5 G, TID, ON WEEKDAYS AND 3 G, TID, ON WEEKENDS
     Route: 048
     Dates: start: 2016
  10. NABUMETONE. [Concomitant]
     Active Substance: NABUMETONE
  11. XYREM [Suspect]
     Active Substance: SODIUM OXYBATE
     Dosage: 4 G, BID
     Route: 048
     Dates: start: 201402, end: 2016
  12. SPIRONOLACTONE. [Concomitant]
     Active Substance: SPIRONOLACTONE
  13. VALACYCLOVIR HCL [Concomitant]
     Active Substance: VALACYCLOVIR HYDROCHLORIDE
  14. GABAPENTIN. [Concomitant]
     Active Substance: GABAPENTIN
  15. XANAX [Concomitant]
     Active Substance: ALPRAZOLAM
  16. EFFEXOR [Concomitant]
     Active Substance: VENLAFAXINE HYDROCHLORIDE
  17. NUVIGIL [Concomitant]
     Active Substance: ARMODAFINIL
  18. ATIVAN [Concomitant]
     Active Substance: LORAZEPAM
  19. REMERON [Concomitant]
     Active Substance: MIRTAZAPINE

REACTIONS (2)
  - Vomiting [Recovered/Resolved]
  - Anxiety [Unknown]
